FAERS Safety Report 16101947 (Version 1)
Quarter: 2019Q1

REPORT INFORMATION
  Report Type: Spontaneous
  Country: US (occurrence: US)
  Receive Date: 20190321
  Receipt Date: 20190321
  Transmission Date: 20190418
  Serious: No
  Sender: FDA-Public Use
  Company Number: US-BAUSCH-BL-2019-007126

PATIENT
  Sex: Male

DRUGS (1)
  1. CROMOLYN SODIUM NASAL SOLUTION USP [Suspect]
     Active Substance: CROMOLYN SODIUM
     Indication: NASAL CONGESTION
     Dosage: 1 SPRAY PER NOSTRIL 4 TO 5 TIMES PER DAY
     Route: 045
     Dates: start: 20181029, end: 20190304

REACTIONS (1)
  - Drug ineffective [Unknown]
